FAERS Safety Report 6615837-8 (Version None)
Quarter: 2010Q1

REPORT INFORMATION
  Report Type: 
  Country: None (occurrence: None)
  Receive Date: 20100305
  Receipt Date: 20100222
  Transmission Date: 20100710
  Serious: Yes (Hospitalization, Other)
  Sender: FDA-Public Use
  Company Number: PFIZER INC-2007090555

PATIENT
  Sex: Female

DRUGS (6)
  1. DILANTIN-125 [Suspect]
     Indication: CONVULSION
     Dates: start: 20040709
  2. LORTAB [Suspect]
  3. NORVASC [Concomitant]
  4. MECLIZINE [Concomitant]
  5. DICLOFENAC [Concomitant]
  6. ACCUPRIL [Concomitant]

REACTIONS (11)
  - DRUG HYPERSENSITIVITY [None]
  - EOSINOPHIL COUNT INCREASED [None]
  - GASTRITIS [None]
  - HEPATIC ENZYME INCREASED [None]
  - PHARYNGEAL OEDEMA [None]
  - PRURITUS [None]
  - PYREXIA [None]
  - RASH GENERALISED [None]
  - STEVENS-JOHNSON SYNDROME [None]
  - SWELLING [None]
  - SWOLLEN TONGUE [None]
